FAERS Safety Report 5476254-X (Version None)
Quarter: 2007Q4

REPORT INFORMATION
  Report Type: 
  Country: None (occurrence: None)
  Receive Date: 20071003
  Receipt Date: 20070913
  Transmission Date: 20080405
  Serious: No
  Sender: FDA-Public Use
  Company Number: US-BOEHRINGER INGELHEIM PHARMACEUTICALS, INC.-2007-BP-21955BP

PATIENT
  Age: 65 Year
  Sex: Male

DRUGS (1)
  1. MIRAPEX [Suspect]
     Indication: PAIN

REACTIONS (2)
  - PAIN [None]
  - RESTLESS LEGS SYNDROME [None]
